FAERS Safety Report 5809200-7 (Version None)
Quarter: 2008Q3

REPORT INFORMATION
  Report Type: 
  Country: None (occurrence: None)
  Receive Date: 20080714
  Receipt Date: 20080704
  Transmission Date: 20090109
  Serious: Yes (Other)
  Sender: FDA-Public Use
  Company Number: DE-ABBOTT-08P-062-0461332-00

PATIENT
  Sex: Female

DRUGS (5)
  1. HUMIRA [Suspect]
     Indication: CROHN'S DISEASE
     Route: 058
     Dates: start: 20071106, end: 20080620
  2. HUMIRA [Suspect]
     Route: 058
     Dates: start: 20080620
  3. METHOTREXATE [Concomitant]
     Indication: CROHN'S DISEASE
  4. LEVOTHYROXINE SODIUM [Concomitant]
     Indication: HYPERTHYROIDISM
  5. TARGIN [Concomitant]
     Indication: PAIN

REACTIONS (3)
  - MYALGIA [None]
  - PARALYSIS [None]
  - SPEECH DISORDER [None]
